FAERS Safety Report 25541338 (Version 2)
Quarter: 2025Q3

REPORT INFORMATION
  Report Type: Spontaneous
  Country: GB (occurrence: GB)
  Receive Date: 20250711
  Receipt Date: 20250812
  Transmission Date: 20251020
  Serious: Yes (Hospitalization)
  Sender: ABBVIE
  Company Number: None

PATIENT

DRUGS (3)
  1. CITALOPRAM [Interacting]
     Active Substance: CITALOPRAM
     Indication: Product used for unknown indication
     Route: 048
  2. KESIMPTA [Interacting]
     Active Substance: OFATUMUMAB
     Indication: Multiple sclerosis
     Dosage: 20 MG, QW  PRE-FILLED SYRINGE
     Route: 058
     Dates: start: 20250422
  3. KESIMPTA [Interacting]
     Active Substance: OFATUMUMAB
     Indication: Multiple sclerosis
     Dosage: 20 MG, QW  PRE-FILLED SYRINGE
     Route: 058
     Dates: start: 20250622

REACTIONS (11)
  - Multiple sclerosis relapse [Recovering/Resolving]
  - Influenza like illness [Not Recovered/Not Resolved]
  - Night sweats [Recovered/Resolved]
  - Muscular weakness [Recovering/Resolving]
  - Pain [Not Recovered/Not Resolved]
  - Vomiting [Recovering/Resolving]
  - Gait inability [Recovering/Resolving]
  - Headache [Not Recovered/Not Resolved]
  - Dizziness [Recovering/Resolving]
  - Drug interaction [Recovering/Resolving]
  - Injection site mass [Unknown]
